FAERS Safety Report 20137379 (Version 5)
Quarter: 2022Q2

REPORT INFORMATION
  Report Type: Report from Study
  Country: AU (occurrence: AU)
  Receive Date: 20211201
  Receipt Date: 20220419
  Transmission Date: 20220721
  Serious: No
  Sender: FDA-Public Use
  Company Number: AU-NOVARTISPH-NVSC2021AU273914

PATIENT
  Sex: Female

DRUGS (3)
  1. SECUKINUMAB [Suspect]
     Active Substance: SECUKINUMAB
     Indication: Psoriatic arthropathy
     Dosage: 300 MG, QMO
     Route: 065
     Dates: start: 2017
  2. SECUKINUMAB [Suspect]
     Active Substance: SECUKINUMAB
     Indication: Spinal osteoarthritis
  3. SECUKINUMAB [Suspect]
     Active Substance: SECUKINUMAB
     Indication: Sacroiliitis

REACTIONS (2)
  - Condition aggravated [Unknown]
  - Axial spondyloarthritis [Unknown]
